FAERS Safety Report 5261067-4 (Version None)
Quarter: 2007Q1

REPORT INFORMATION
  Report Type: 
  Country: None (occurrence: None)
  Receive Date: 20070309
  Receipt Date: 20070227
  Transmission Date: 20070707
  Serious: Yes (Hospitalization, Other)
  Sender: FDA-Public Use
  Company Number: JP-PFIZER INC-2007014688

PATIENT
  Sex: Male

DRUGS (13)
  1. ZITHROMAC [Suspect]
     Indication: PYREXIA
     Dosage: DAILY DOSE:500MG
     Route: 048
     Dates: start: 20070122, end: 20070123
  2. ZITHROMAC [Suspect]
     Indication: INFECTION
  3. HANDARAMIN [Suspect]
     Indication: PYREXIA
     Dosage: DAILY DOSE:600MG
     Route: 042
     Dates: start: 20070124, end: 20070124
  4. HANDARAMIN [Suspect]
     Indication: INFECTION
  5. LOXOPROFEN SODIUM [Suspect]
     Indication: PYREXIA
     Dosage: DAILY DOSE:60MG
     Route: 048
     Dates: start: 20070122, end: 20070124
  6. DICLOFENAC SODIUM [Suspect]
     Indication: PYREXIA
     Dosage: DAILY DOSE:25MG
     Route: 054
     Dates: start: 20070124, end: 20070124
  7. OLMETEC [Concomitant]
     Indication: HYPERTENSION
     Dosage: DAILY DOSE:20MG
     Route: 048
  8. TICLOPIDINE HCL [Concomitant]
     Indication: ANGINA PECTORIS
     Dosage: DAILY DOSE:100MG
     Route: 048
  9. EPADEL [Concomitant]
     Route: 048
  10. TICLOPIDINE HYDROCHLORIDE [Concomitant]
  11. LYSOZYME HYDROCHLORIDE [Concomitant]
     Route: 048
     Dates: start: 20070122, end: 20070124
  12. PODONIN S [Concomitant]
     Route: 048
     Dates: start: 20070122, end: 20070124
  13. SOLMALT [Concomitant]
     Route: 042
     Dates: start: 20070124, end: 20070125

REACTIONS (2)
  - HEPATIC FUNCTION ABNORMAL [None]
  - STEVENS-JOHNSON SYNDROME [None]
